FAERS Safety Report 10722732 (Version 1)
Quarter: 2015Q1

REPORT INFORMATION
  Report Type: Spontaneous
  Country: US (occurrence: US)
  Receive Date: 20150120
  Receipt Date: 20150120
  Transmission Date: 20150721
  Serious: Yes (Death, Hospitalization, Other)
  Sender: FDA-Public Use
  Company Number: US-GLAXOSMITHKLINE-US2015GSK002035

PATIENT
  Age: 36 Year
  Sex: Male

DRUGS (2)
  1. PAROXETINE [Suspect]
     Active Substance: PAROXETINE\PAROXETINE HYDROCHLORIDE
     Indication: PRODUCT USED FOR UNKNOWN INDICATION
     Route: 048
  2. LAMOTRIGINE. [Suspect]
     Active Substance: LAMOTRIGINE
     Indication: PRODUCT USED FOR UNKNOWN INDICATION
     Route: 048

REACTIONS (13)
  - Death [Fatal]
  - Generalised tonic-clonic seizure [Unknown]
  - Hypoxic-ischaemic encephalopathy [Fatal]
  - Apnoeic attack [Unknown]
  - Drug abuse [Unknown]
  - Cardiac arrest [Unknown]
  - Tachycardia [Unknown]
  - Brain stem haemorrhage [Unknown]
  - Pulse absent [Unknown]
  - Brain injury [Unknown]
  - Thrombosis [Unknown]
  - Brain oedema [Unknown]
  - Pulmonary embolism [Unknown]
